FAERS Safety Report 7115915-3 (Version None)
Quarter: 2010Q4

REPORT INFORMATION
  Report Type: 
  Country: None (occurrence: None)
  Receive Date: 20101122
  Receipt Date: 20101112
  Transmission Date: 20110411
  Serious: Yes (Other)
  Sender: FDA-Public Use
  Company Number: GB-BAXTER-2010BH028082

PATIENT
  Age: 77 Year
  Sex: Male

DRUGS (10)
  1. GAMMAGARD LIQUID [Suspect]
     Indication: MYASTHENIA GRAVIS
     Route: 042
     Dates: start: 20101012, end: 20101012
  2. GAMMAGARD LIQUID [Suspect]
     Indication: OFF LABEL USE
     Route: 042
     Dates: start: 20101012, end: 20101012
  3. ALENDRONIC ACID [Concomitant]
     Dates: start: 20100801
  4. ALFUZOSIN [Concomitant]
     Route: 048
  5. ASPIRIN [Concomitant]
     Route: 048
  6. AZATHIOPRINE [Concomitant]
     Route: 048
     Dates: start: 20100801
  7. CALCICHEW D3 [Concomitant]
     Route: 048
     Dates: start: 20100801
  8. LANSOPRAZOLE [Concomitant]
     Route: 048
  9. PRO-BANTHINE [Concomitant]
     Route: 048
     Dates: start: 20100801
  10. PYRIDOSTIGMINE BROMIDE [Concomitant]
     Route: 048

REACTIONS (10)
  - ANAPHYLACTOID REACTION [None]
  - ANXIETY [None]
  - ATRIAL FIBRILLATION [None]
  - CHILLS [None]
  - DYSPNOEA [None]
  - FEELING OF BODY TEMPERATURE CHANGE [None]
  - HEADACHE [None]
  - HEART RATE INCREASED [None]
  - HYPERTENSION [None]
  - MALAISE [None]
